FAERS Safety Report 5662557-2 (Version None)
Quarter: 2008Q1

REPORT INFORMATION
  Report Type: 
  Country: None (occurrence: None)
  Receive Date: 20080215
  Receipt Date: 20071120
  Transmission Date: 20080703
  Serious: Yes (Other)
  Sender: FDA-Public Use
  Company Number: 532995

PATIENT
  Age: 56 Year
  Sex: Female

DRUGS (4)
  1. KETOROLAC (KETOROLAC) [Suspect]
     Indication: DRUG USE FOR UNKNOWN INDICATION
     Dosage: 4 PER DAY TOPICAL
     Route: 061
  2. NEPAFENAC (NEPAFENAC) [Suspect]
     Indication: DRUG USE FOR UNKNOWN INDICATION
     Dosage: 3 PER DAY TOPICAL
     Route: 061
  3. PREDNISOLONE (PREDNISONE) [Concomitant]
  4. MOXIFLOXACIN UNK (MOXIFLOXACIN) [Concomitant]

REACTIONS (3)
  - EYE PENETRATION [None]
  - SKIN DISORDER [None]
  - ULCERATIVE KERATITIS [None]
